FAERS Safety Report 25824745 (Version 1)
Quarter: 2025Q3

REPORT INFORMATION
  Report Type: Spontaneous
  Country: US (occurrence: US)
  Receive Date: 20250919
  Receipt Date: 20250919
  Transmission Date: 20251021
  Serious: Yes (Hospitalization, Other)
  Sender: UNITED THERAPEUTICS
  Company Number: US-UNITED THERAPEUTICS-UNT-2025-028875

PATIENT
  Sex: Male

DRUGS (4)
  1. TYVASO [Suspect]
     Active Substance: TREPROSTINIL
     Indication: Pulmonary arterial hypertension
     Dosage: 54 ?G, QID
     Dates: start: 2025
  2. TYVASO [Suspect]
     Active Substance: TREPROSTINIL
     Indication: Idiopathic pulmonary fibrosis
  3. FUROSEMIDE [Concomitant]
     Active Substance: FUROSEMIDE
     Indication: Peripheral swelling
  4. BUMETANIDE [Concomitant]
     Active Substance: BUMETANIDE
     Indication: Peripheral swelling

REACTIONS (5)
  - Lung disorder [Recovered/Resolved]
  - Pulmonary oedema [Unknown]
  - Dyspnoea exertional [Unknown]
  - Dizziness postural [Unknown]
  - Peripheral swelling [Unknown]

NARRATIVE: CASE EVENT DATE: 20250101
